FAERS Safety Report 10652997 (Version 1)
Quarter: 2014Q4

REPORT INFORMATION
  Report Type: Spontaneous
  Country: US (occurrence: US)
  Receive Date: 20141215
  Receipt Date: 20141215
  Transmission Date: 20150529
  Serious: No
  Sender: FDA-Public Use
  Company Number: US-GLAXOSMITHKLINE-US2014GSK015426

PATIENT
  Sex: Female

DRUGS (3)
  1. NICODERM CQ [Suspect]
     Active Substance: NICOTINE
     Dosage: UNK
     Dates: start: 2012, end: 2012
  2. NICODERM CQ [Suspect]
     Active Substance: NICOTINE
  3. NICODERM CQ [Suspect]
     Active Substance: NICOTINE
     Dates: end: 20141008

REACTIONS (7)
  - Application site pruritus [Recovered/Resolved]
  - Malaise [Recovered/Resolved]
  - Application site erythema [Recovered/Resolved]
  - Heart rate increased [Recovered/Resolved]
  - Expired product administered [Recovered/Resolved]
  - Application site hypersensitivity [Recovered/Resolved]
  - Dermatitis contact [Unknown]

NARRATIVE: CASE EVENT DATE: 20140928
